FAERS Safety Report 7052702-9 (Version None)
Quarter: 2010Q4

REPORT INFORMATION
  Report Type: 
  Country: None (occurrence: None)
  Receive Date: 20101012
  Receipt Date: 20101004
  Transmission Date: 20110411
  Serious: Yes (Hospitalization, Other)
  Sender: FDA-Public Use
  Company Number: 2009SP035850

PATIENT
  Age: 29 Year
  Sex: Female
  Weight: 99.7913 kg

DRUGS (2)
  1. NUVARING [Suspect]
     Indication: CONTRACEPTION
     Dates: start: 20030805, end: 20060101
  2. ADVAIR DISKUS 100/50 [Concomitant]

REACTIONS (26)
  - ACTIVATED PARTIAL THROMBOPLASTIN TIME PROLONGED [None]
  - ANAL FISSURE [None]
  - ASTHMA [None]
  - BLOOD HOMOCYSTEINE DECREASED [None]
  - BRONCHITIS [None]
  - CARDIAC ARREST [None]
  - CARDIAC DISORDER [None]
  - COLLAPSE OF LUNG [None]
  - CONVULSION [None]
  - DERMATITIS [None]
  - HAEMORRHAGE [None]
  - HEADACHE [None]
  - HYPERCOAGULATION [None]
  - INTERNATIONAL NORMALISED RATIO INCREASED [None]
  - MIGRAINE [None]
  - OVARIAN CYST [None]
  - OVULATION PAIN [None]
  - PROTEIN S DECREASED [None]
  - PROTHROMBIN TIME PROLONGED [None]
  - PULMONARY EMBOLISM [None]
  - PULMONARY HYPERTENSION [None]
  - RECTAL HAEMORRHAGE [None]
  - RIGHT VENTRICULAR FAILURE [None]
  - UPPER RESPIRATORY TRACT INFECTION [None]
  - VAGINITIS BACTERIAL [None]
  - VARICOSE VEIN [None]
